FAERS Safety Report 9655642 (Version 2)
Quarter: 2013Q4

REPORT INFORMATION
  Report Type: Spontaneous
  Country: US (occurrence: US)
  Receive Date: 20131030
  Receipt Date: 20131030
  Transmission Date: 20140711
  Serious: Yes (Other)
  Sender: FDA-Public Use
  Company Number: US-JNJFOC-20131004753

PATIENT
  Age: 67 Year
  Sex: Female
  Weight: 58.97 kg

DRUGS (2)
  1. IMODIUM A-D [Suspect]
     Route: 048
  2. IMODIUM A-D [Suspect]
     Indication: DIARRHOEA
     Route: 048
     Dates: start: 20130922

REACTIONS (3)
  - Surgery [Unknown]
  - Expired drug administered [Recovering/Resolving]
  - Inappropriate schedule of drug administration [Unknown]
